FAERS Safety Report 6146657-9 (Version None)
Quarter: 2009Q2

REPORT INFORMATION
  Report Type: 
  Country: None (occurrence: None)
  Receive Date: 20090407
  Receipt Date: 20090330
  Transmission Date: 20091009
  Serious: Yes (Other)
  Sender: FDA-Public Use
  Company Number: US-ELI_LILLY_AND_COMPANY-US200903007669

PATIENT
  Age: 49 Year
  Sex: Female

DRUGS (3)
  1. HUMALOG [Suspect]
     Dosage: UNK, DAILY (1/D)
  2. HUMULIN 70/30 [Suspect]
     Dosage: UNK, UNK
     Dates: start: 19990101
  3. HUMULIN 70/30 [Suspect]

REACTIONS (10)
  - BLINDNESS TRANSIENT [None]
  - CARDIAC DISORDER [None]
  - CIRCULATORY COLLAPSE [None]
  - DEVICE BREAKAGE [None]
  - GOITRE [None]
  - HEPATIC STEATOSIS [None]
  - INJECTION SITE HAEMORRHAGE [None]
  - OVERDOSE [None]
  - PRODUCT QUALITY ISSUE [None]
  - VISUAL ACUITY REDUCED [None]
